FAERS Safety Report 6972662-6 (Version None)
Quarter: 2010Q3

REPORT INFORMATION
  Report Type: 
  Country: None (occurrence: None)
  Receive Date: 20100909
  Receipt Date: 20100831
  Transmission Date: 20110219
  Serious: Yes (Other)
  Sender: FDA-Public Use
  Company Number: AU-PFIZER INC-2010109677

PATIENT
  Age: 79 Year
  Sex: Male

DRUGS (6)
  1. CADUET [Suspect]
     Dosage: 5MG/80MG
     Dates: start: 20100812
  2. LIPITOR [Suspect]
     Dosage: UNK
  3. AMLODIPINE BESYLATE [Suspect]
     Dosage: UNK
  4. AVAPRO [Concomitant]
  5. CARTIA XT [Concomitant]
     Dosage: UNK
  6. NEXIUM [Concomitant]

REACTIONS (2)
  - MUSCLE RUPTURE [None]
  - RASH [None]
